FAERS Safety Report 14861235 (Version 1)
Quarter: 2018Q2

REPORT INFORMATION
  Report Type: Spontaneous
  Country: US (occurrence: US)
  Receive Date: 20180423
  Receipt Date: 20180423
  Transmission Date: 20180711
  Serious: Yes (Other)
  Sender: FDA-Public Use
  Company Number: None

PATIENT
  Age: 71 Year
  Sex: Female
  Weight: 58.5 kg

DRUGS (1)
  1. LEVOTHYROXINE. [Suspect]
     Active Substance: LEVOTHYROXINE
     Indication: HYPOTHYROIDISM
     Dosage: ?          QUANTITY:2 TABLET(S);OTHER FREQUENCY:3 X WEEK;?
     Route: 048
     Dates: start: 20180413, end: 20180418

REACTIONS (4)
  - Abdominal distension [None]
  - Abdominal pain upper [None]
  - Diarrhoea [None]
  - Muscle spasms [None]

NARRATIVE: CASE EVENT DATE: 20180415
